FAERS Safety Report 7386729-4 (Version None)
Quarter: 2011Q1

REPORT INFORMATION
  Report Type: 
  Country: None (occurrence: None)
  Receive Date: 20110323
  Receipt Date: 20110315
  Transmission Date: 20110831
  Serious: Yes (Other)
  Sender: FDA-Public Use
  Company Number: GB-1184849

PATIENT
  Age: 80 Year
  Sex: Male
  Weight: 69.8539 kg

DRUGS (2)
  1. ALPHAGAN [Concomitant]
  2. TRAVATAN [Suspect]
     Indication: ANGLE CLOSURE GLAUCOMA
     Dosage: (1 GTT QDOS OPHTHALMIC)
     Route: 047
     Dates: start: 20080101

REACTIONS (9)
  - EYE INFLAMMATION [None]
  - DRUG INEFFECTIVE [None]
  - EYE PRURITUS [None]
  - ASTHENIA [None]
  - DYSPNOEA [None]
  - OCULAR HYPERAEMIA [None]
  - DEPRESSION [None]
  - EYE DISCHARGE [None]
  - OCULAR DISCOMFORT [None]
